FAERS Safety Report 4752896-1 (Version None)
Quarter: 2005Q3

REPORT INFORMATION
  Report Type: 
  Country: None (occurrence: None)
  Receive Date: 20050714
  Receipt Date: 20050422
  Transmission Date: 20060218
  Serious: Yes (Hospitalization, Other)
  Sender: FDA-Public Use
  Company Number: 200512589US

PATIENT
  Age: 63 Year
  Sex: Male

DRUGS (20)
  1. TAXOTERE [Suspect]
     Indication: LUNG NEOPLASM MALIGNANT
     Dosage: 75 (20MG VIAL) MG/M**2 QMTH
     Dates: start: 20040910, end: 20040910
  2. TAXOTERE [Suspect]
     Indication: LUNG NEOPLASM MALIGNANT
     Dosage: 75 (80MG VIAL) MG/M**2 QMTH
     Dates: start: 20040910, end: 20040910
  3. TAXOTERE [Suspect]
     Indication: LUNG NEOPLASM MALIGNANT
     Dosage: 75 (20MG VIAL) MG/M**2 QMTH
     Dates: start: 20041020, end: 20041020
  4. TAXOTERE [Suspect]
     Indication: LUNG NEOPLASM MALIGNANT
     Dosage: 75 (80MG VIAL) MG/M**2 QMTH
     Dates: start: 20041020, end: 20041020
  5. TAXOTERE [Suspect]
     Indication: LUNG NEOPLASM MALIGNANT
     Dosage: 75 (80MG VIAL) MG/M**2 QMTH
     Dates: start: 20041020, end: 20041020
  6. TAXOTERE [Suspect]
     Indication: LUNG NEOPLASM MALIGNANT
     Dosage: 75 (20MG VIAL) MG/M**2 QMTH
     Dates: start: 20041110, end: 20041110
  7. TAXOTERE [Suspect]
     Indication: LUNG NEOPLASM MALIGNANT
     Dosage: 75 (80MG VIAL) MG/M**2 QMTH
     Dates: start: 20041110, end: 20041110
  8. TAXOTERE [Suspect]
     Indication: LUNG NEOPLASM MALIGNANT
     Dosage: 75 (20MG VIAL) MG/M**2 QMTH
     Dates: start: 20041201, end: 20041201
  9. TAXOTERE [Suspect]
     Indication: LUNG NEOPLASM MALIGNANT
     Dosage: 75 (80MG VIAL) MG/M**2 QMTH
     Dates: start: 20041201, end: 20041201
  10. TAXOTERE [Suspect]
     Indication: LUNG NEOPLASM MALIGNANT
     Dosage: 75 (20MG VIAL) MG/M**2 QMTH
     Dates: start: 20041222, end: 20041222
  11. TAXOTERE [Suspect]
     Indication: LUNG NEOPLASM MALIGNANT
     Dosage: 75 (80MG VIAL) MG/M**2 QMTH
     Dates: start: 20041222, end: 20041222
  12. ASPIRIN [Concomitant]
  13. SIMVASTATIN [Concomitant]
  14. FUROSEMIDE [Concomitant]
  15. HYDROCODONE [Concomitant]
  16. DECADRON [Concomitant]
  17. NEURONTIN [Concomitant]
  18. THIAMINE HCL [Concomitant]
  19. VITAMIN B-12 [Concomitant]
  20. WARFARIN SODIUM [Concomitant]

REACTIONS (3)
  - DYSPNOEA [None]
  - OEDEMA PERIPHERAL [None]
  - PLEURAL EFFUSION [None]
